FAERS Safety Report 25360802 (Version 1)
Quarter: 2025Q2

REPORT INFORMATION
  Report Type: Spontaneous
  Country: US (occurrence: US)
  Receive Date: 20250527
  Receipt Date: 20250527
  Transmission Date: 20250716
  Serious: No
  Sender: TOLMAR
  Company Number: US-TOLMAR, INC.-25US057395

PATIENT
  Age: 72 Year
  Sex: Male

DRUGS (3)
  1. ELIGARD [Suspect]
     Active Substance: LEUPROLIDE ACETATE
     Indication: Prostate cancer
     Dosage: 45 MILLIGRAM, Q 6 MONTH, ONGOING
     Route: 058
     Dates: start: 20250213
  2. ELIGARD [Suspect]
     Active Substance: LEUPROLIDE ACETATE
     Dosage: 45 MILLIGRAM, Q 6 MONTH
     Route: 058
     Dates: start: 20240304
  3. DEVICE [Suspect]
     Active Substance: DEVICE
     Indication: Prostate cancer
     Route: 058

REACTIONS (4)
  - Intercepted product preparation error [Unknown]
  - Wrong technique in product usage process [Unknown]
  - Product physical consistency issue [Unknown]
  - Product packaging quantity issue [Unknown]

NARRATIVE: CASE EVENT DATE: 20250213
